FAERS Safety Report 23183641 (Version 1)
Quarter: 2023Q4

REPORT INFORMATION
  Report Type: Spontaneous
  Country: US (occurrence: US)
  Receive Date: 20231114
  Receipt Date: 20231114
  Transmission Date: 20240110
  Serious: No
  Sender: FDA-Public Use
  Company Number: US-LUNDBECK-DKLU3068710

PATIENT
  Sex: Male

DRUGS (1)
  1. VYEPTI [Suspect]
     Active Substance: EPTINEZUMAB-JJMR
     Indication: Migraine
     Route: 041
     Dates: start: 20230711

REACTIONS (14)
  - Balance disorder [Unknown]
  - Vision blurred [Unknown]
  - Strabismus [Unknown]
  - Headache [Unknown]
  - Dizziness [Unknown]
  - Chills [Unknown]
  - Hot flush [Unknown]
  - Dyspnoea [Unknown]
  - Myalgia [Unknown]
  - Nausea [Unknown]
  - Fatigue [Unknown]
  - Tinnitus [Unknown]
  - Increased viscosity of upper respiratory secretion [Unknown]
  - Drug ineffective [Unknown]
